FAERS Safety Report 10378257 (Version 4)
Quarter: 2016Q1

REPORT INFORMATION
  Report Type: Spontaneous
  Country: US (occurrence: US)
  Receive Date: 20140812
  Receipt Date: 20160113
  Transmission Date: 20160525
  Serious: Yes (Hospitalization)
  Sender: FDA-Public Use
  Company Number: US-PFIZER INC-2014220828

PATIENT
  Age: 60 Year
  Sex: Female

DRUGS (3)
  1. XALKORI [Suspect]
     Active Substance: CRIZOTINIB
     Dosage: 250 MG, 1X/DAY
  2. XALKORI [Suspect]
     Active Substance: CRIZOTINIB
     Indication: LUNG CANCER METASTATIC
     Dosage: 2 DF, DAILY
     Dates: start: 201405, end: 2014
  3. XALKORI [Suspect]
     Active Substance: CRIZOTINIB
     Dosage: 1 DF, DAILY
     Dates: start: 2014

REACTIONS (6)
  - Hypotension [Unknown]
  - Asthenia [Not Recovered/Not Resolved]
  - Hypersensitivity [Unknown]
  - Syncope [Unknown]
  - Dizziness [Not Recovered/Not Resolved]
  - Weight decreased [Recovered/Resolved]

NARRATIVE: CASE EVENT DATE: 2014
